FAERS Safety Report 10991357 (Version 2)
Quarter: 2015Q2

REPORT INFORMATION
  Report Type: Other
  Country: GB (occurrence: GB)
  Receive Date: 20150406
  Receipt Date: 20150421
  Transmission Date: 20150821
  Serious: Yes (Death, Other)
  Sender: FDA-Public Use
  Company Number: GB-GLENMARK GENERICS INC.-2015GMK015480

PATIENT

DRUGS (1)
  1. GABAPENTIN. [Suspect]
     Active Substance: GABAPENTIN
     Indication: BACK PAIN
     Dosage: 200 MG, TID
     Route: 048
     Dates: start: 20140508

REACTIONS (16)
  - Thinking abnormal [Unknown]
  - Delusion [Unknown]
  - Hypoaesthesia [Unknown]
  - Panic reaction [Unknown]
  - Negative thoughts [Unknown]
  - Diarrhoea [Unknown]
  - Completed suicide [Fatal]
  - Product use issue [Unknown]
  - Hallucination [Unknown]
  - Paralysis [Unknown]
  - Dyspnoea [Unknown]
  - Personality change [Not Recovered/Not Resolved]
  - Anger [Unknown]
  - Feeling abnormal [Unknown]
  - Irritability [Unknown]
  - Constipation [Unknown]

NARRATIVE: CASE EVENT DATE: 20140508
